FAERS Safety Report 18282975 (Version 2)
Quarter: 2020Q4

REPORT INFORMATION
  Report Type: Spontaneous
  Country: NL (occurrence: FI)
  Receive Date: 20200918
  Receipt Date: 20201001
  Transmission Date: 20210113
  Serious: Yes (Death, Other)
  Sender: FDA-Public Use
  Company Number: FI-FRESENIUS KABI-FK202009522

PATIENT
  Age: 51 Year
  Sex: Male

DRUGS (16)
  1. ETOPOSIDE (MANUFACTURER UNKNOWN) [Suspect]
     Active Substance: ETOPOSIDE
     Dosage: 1ST CYCLE
     Route: 065
     Dates: start: 20191205, end: 20191209
  2. CARBOPLATIN. [Suspect]
     Active Substance: CARBOPLATIN
     Indication: SMALL CELL LUNG CANCER
     Dosage: 1 CYCLES
     Route: 042
     Dates: start: 20191205, end: 20191209
  3. CARBOPLATIN. [Suspect]
     Active Substance: CARBOPLATIN
     Dosage: 2ND CYCLES
     Route: 042
     Dates: start: 20191230, end: 20200103
  4. ATEZOLIZUMAB. [Suspect]
     Active Substance: ATEZOLIZUMAB
     Dosage: CYCLE FOUR
     Route: 042
     Dates: start: 20200227, end: 20200302
  5. ATEZOLIZUMAB. [Suspect]
     Active Substance: ATEZOLIZUMAB
     Dosage: CYCLE TWO
     Route: 042
     Dates: start: 20191230, end: 20200103
  6. CARBOPLATIN. [Suspect]
     Active Substance: CARBOPLATIN
     Dosage: 3RD CYCLES
     Route: 042
     Dates: start: 20200130, end: 20200203
  7. ATEZOLIZUMAB. [Suspect]
     Active Substance: ATEZOLIZUMAB
     Dosage: CYCLE ONE
     Route: 042
     Dates: start: 20191205, end: 20191209
  8. LIPEGFILGRASTIM [Concomitant]
     Active Substance: LIPEGFILGRASTIM
     Indication: PRODUCT USED FOR UNKNOWN INDICATION
     Route: 065
     Dates: start: 20200130
  9. ETOPOSIDE. [Concomitant]
     Active Substance: ETOPOSIDE
     Indication: PRODUCT USED FOR UNKNOWN INDICATION
     Dosage: TB 2+1 TB ON THE 3RD DAY
     Route: 065
     Dates: start: 2020
  10. ETOPOSIDE (MANUFACTURER UNKNOWN) [Suspect]
     Active Substance: ETOPOSIDE
     Dosage: 2 CYCLES
     Route: 065
     Dates: start: 20191230, end: 20200103
  11. ATEZOLIZUMAB. [Suspect]
     Active Substance: ATEZOLIZUMAB
     Indication: SMALL CELL LUNG CANCER
     Dosage: CYCLE THREE-MAINTENANCE THERAPY
     Route: 042
     Dates: start: 20200430
  12. ATEZOLIZUMAB. [Suspect]
     Active Substance: ATEZOLIZUMAB
     Dosage: CYCLE ONE-MAINTENENCE THERAPY
     Route: 042
     Dates: start: 20200319
  13. ETOPOSIDE. [Concomitant]
     Active Substance: ETOPOSIDE
     Dosage: 2TB X 2 PO FOR 3 DAYS
     Route: 065
     Dates: start: 2019
  14. CARBOPLATIN. [Suspect]
     Active Substance: CARBOPLATIN
     Dosage: 4TH CYCLES
     Route: 042
     Dates: start: 20200227, end: 20200302
  15. ETOPOSIDE (MANUFACTURER UNKNOWN) [Suspect]
     Active Substance: ETOPOSIDE
     Indication: SMALL CELL LUNG CANCER
     Dosage: 3 CYCLES
     Route: 065
     Dates: start: 20200130, end: 20200203
  16. ATEZOLIZUMAB. [Suspect]
     Active Substance: ATEZOLIZUMAB
     Dosage: CYCLE TWO- MAINTENENCE THERAPY
     Route: 042
     Dates: start: 20200409

REACTIONS (7)
  - Musculoskeletal stiffness [Unknown]
  - Loss of consciousness [Unknown]
  - Anaemia [Recovered/Resolved]
  - Disorientation [Unknown]
  - Metastases to central nervous system [Fatal]
  - Neutropenia [Recovered/Resolved]
  - Thrombocytopenia [Recovered/Resolved]

NARRATIVE: CASE EVENT DATE: 20200121
